FAERS Safety Report 25710155 (Version 2)
Quarter: 2025Q3

REPORT INFORMATION
  Report Type: Spontaneous
  Country: EU (occurrence: EU)
  Receive Date: 20250821
  Receipt Date: 20250903
  Transmission Date: 20251021
  Serious: Yes (Other)
  Sender: RANBAXY
  Company Number: EU-SUN PHARMACEUTICAL INDUSTRIES LTD-2025R1-523693

PATIENT
  Age: 74 Year
  Sex: Female

DRUGS (1)
  1. IMATINIB [Suspect]
     Active Substance: IMATINIB
     Indication: Chronic myeloid leukaemia
     Route: 065

REACTIONS (4)
  - Hypoalbuminaemia [Unknown]
  - Hypotension [Unknown]
  - Generalised oedema [Recovered/Resolved]
  - Anuria [Recovered/Resolved]
